FAERS Safety Report 25949306 (Version 1)
Quarter: 2025Q4

REPORT INFORMATION
  Report Type: Spontaneous
  Country: EU (occurrence: EU)
  Receive Date: 20251022
  Receipt Date: 20251022
  Transmission Date: 20260118
  Serious: Yes (Death, Congenital Anomaly)
  Sender: CHEPLAPHARM
  Company Number: None

PATIENT
  Sex: Female
  Weight: 0.34 kg

DRUGS (3)
  1. QUETIAPINE [Suspect]
     Active Substance: QUETIAPINE
     Indication: Anxiety disorder
     Dosage: DAILY DOSE: 25 MILLIGRAM
     Route: 064
     Dates: start: 202403, end: 202408
  2. DULOXETINE [Suspect]
     Active Substance: DULOXETINE
     Indication: Anxiety disorder
     Dosage: DAILY DOSE: 90 MILLIGRAM
     Route: 064
     Dates: start: 202403, end: 202408
  3. LEVOTHYROXINE SODIUM [Concomitant]
     Active Substance: LEVOTHYROXINE SODIUM
     Indication: Hypothyroidism
     Dosage: DAILY DOSE: 100 MICROGRAM
     Route: 064
     Dates: start: 202403, end: 202408

REACTIONS (4)
  - Encephalocele [Fatal]
  - Atrioventricular septal defect [Not Recovered/Not Resolved]
  - Cleft lip and palate [Not Recovered/Not Resolved]
  - Foetal exposure during pregnancy [Unknown]
